FAERS Safety Report 5466566-8 (Version None)
Quarter: 2007Q3

REPORT INFORMATION
  Report Type: 
  Country: None (occurrence: None)
  Receive Date: 20070921
  Receipt Date: 20070921
  Transmission Date: 20080115
  Serious: Yes (Disabling)
  Sender: FDA-Public Use
  Company Number: None

PATIENT
  Sex: Female

DRUGS (1)
  1. INFLIXAMAB [Suspect]
     Indication: RHEUMATOID ARTHRITIS
     Dosage: 500MG Q8WKS IV
     Route: 042
     Dates: start: 20001201, end: 20060801

REACTIONS (2)
  - DIPLEGIA [None]
  - VERTEBRAL ARTERY OCCLUSION [None]
